FAERS Safety Report 7094008-8 (Version None)
Quarter: 2010Q4

REPORT INFORMATION
  Report Type: 
  Country: None (occurrence: None)
  Receive Date: 20101110
  Receipt Date: 20101029
  Transmission Date: 20110411
  Serious: Yes (Other)
  Sender: FDA-Public Use
  Company Number: US-ELI_LILLY_AND_COMPANY-US201011000101

PATIENT
  Sex: Male

DRUGS (1)
  1. HUMALOG [Suspect]

REACTIONS (1)
  - RENAL TRANSPLANT [None]
